FAERS Safety Report 7892668 (Version 2)
Quarter: 2012Q4

REPORT INFORMATION
  Report Type: 
  Country: DK (occurrence: DK)
  Receive Date: 20110411
  Receipt Date: 20121008
  Transmission Date: 20130627
  Serious: Yes (Death, Other)
  Sender: FDA-Public Use
  Company Number: DK-RANBAXY-2011R1-43572

PATIENT
  Age: 10 Hour

DRUGS (1)
  1. FLUOXETINE [Suspect]
     Indication: PRODUCT USED FOR UNKNOWN INDICATION
     Dosage: UNK
     Route: 064

REACTIONS (5)
  - Foetal exposure during pregnancy [Fatal]
  - Cardiopulmonary failure [Fatal]
  - Haemorrhage [Fatal]
  - Pulmonary oedema neonatal [Fatal]
  - Pulmonary hypertension [Fatal]
